FAERS Safety Report 8858929 (Version 8)
Quarter: 2013Q1

REPORT INFORMATION
  Report Type: Report from Study
  Country: FR (occurrence: FR)
  Receive Date: 20121024
  Receipt Date: 20130125
  Transmission Date: 20140127
  Serious: Yes (Hospitalization, Other)
  Sender: FDA-Public Use
  Company Number: FR-TEVA-357447USA

PATIENT
  Age: 69 Year
  Sex: Male
  Weight: 86 kg

DRUGS (16)
  1. TREANDA [Suspect]
     Indication: MANTLE CELL LYMPHOMA
     Dosage: UID/QD
     Route: 042
     Dates: start: 20120717, end: 20120813
  2. VELCADE [Suspect]
     Indication: MANTLE CELL LYMPHOMA
     Dosage: 2.6 MILLIGRAM DAILY; UID/QD
     Route: 058
     Dates: start: 20120717, end: 20120813
  3. MABTHERA [Suspect]
     Indication: MANTLE CELL LYMPHOMA
     Route: 041
     Dates: start: 20120717, end: 20120813
  4. DEXAMETHASONE [Suspect]
     Indication: MANTLE CELL LYMPHOMA
     Dosage: 40  DAILY;
     Route: 041
     Dates: start: 20120718, end: 20120813
  5. BACTRIM [Suspect]
     Indication: PROPHYLAXIS
     Dosage: DF, UID/QD; REGIMEN 1
     Dates: start: 20120711
  6. TAHOR [Concomitant]
     Indication: DYSLIPIDAEMIA
     Dosage: 40 MILLIGRAM DAILY;
     Route: 048
  7. METFORMIN [Concomitant]
     Indication: DIABETES MELLITUS
     Dosage: 1700 MILLIGRAM DAILY;
     Route: 048
  8. PLAVIX [Concomitant]
     Indication: CEREBROVASCULAR ACCIDENT
     Dosage: 75 MILLIGRAM DAILY;
     Route: 048
     Dates: start: 20110101
  9. KEPPRA [Concomitant]
     Indication: CEREBROVASCULAR ACCIDENT
     Dosage: 1000 MILLIGRAM DAILY;
     Route: 048
     Dates: start: 20110101
  10. LODOZ [Concomitant]
     Indication: HYPERTENSION
     Dosage: 1 DOSAGE FORMS DAILY; 2.5/6.5 MG
  11. ZELITREX [Concomitant]
     Indication: PROPHYLAXIS
     Dosage: 1000 MILLIGRAM DAILY;
     Route: 048
     Dates: start: 20120711
  12. OMEPRAZOLE [Concomitant]
  13. XYZALL [Concomitant]
  14. CHONDROITIN SULFATE [Concomitant]
  15. BISOPROLOL [Concomitant]
  16. COUMADIN [Concomitant]

REACTIONS (8)
  - Arrhythmia [Recovered/Resolved]
  - Bone marrow failure [Recovered/Resolved]
  - Renal failure acute [Recovered/Resolved]
  - Rash scarlatiniform [Recovered/Resolved]
  - Pyrexia [Recovered/Resolved]
  - Atrial fibrillation [Not Recovered/Not Resolved]
  - Vomiting [Unknown]
  - Pneumonia [Recovered/Resolved]
